FAERS Safety Report 23705433 (Version 4)
Quarter: 2024Q4

REPORT INFORMATION
  Report Type: Spontaneous
  Country: US (occurrence: US)
  Receive Date: 20240404
  Receipt Date: 20241028
  Transmission Date: 20250114
  Serious: No
  Sender: GLAXOSMITHKLINE
  Company Number: US-GLAXOSMITHKLINE-US2024AMR039705

PATIENT
  Sex: Female

DRUGS (1)
  1. ZEJULA [Suspect]
     Active Substance: NIRAPARIB
     Indication: Fallopian tube cancer
     Dosage: 200 MG, QD

REACTIONS (6)
  - White blood cell count decreased [Recovered/Resolved]
  - Insomnia [Unknown]
  - Constipation [Unknown]
  - Platelet count decreased [Recovered/Resolved]
  - Speech disorder [Unknown]
  - Fatigue [Unknown]
